FAERS Safety Report 7673219-4 (Version None)
Quarter: 2011Q3

REPORT INFORMATION
  Report Type: 
  Country: None (occurrence: None)
  Receive Date: 20110810
  Receipt Date: 20090615
  Transmission Date: 20111222
  Serious: No
  Sender: FDA-Public Use
  Company Number: 2009BI018397

PATIENT
  Sex: Female

DRUGS (1)
  1. TYSABRI [Suspect]
     Indication: MULTIPLE SCLEROSIS
     Route: 042
     Dates: start: 20090415

REACTIONS (13)
  - MUSCULAR WEAKNESS [None]
  - SPEECH DISORDER [None]
  - NAUSEA [None]
  - URINARY TRACT DISORDER [None]
  - FATIGUE [None]
  - URINARY RETENTION [None]
  - BALANCE DISORDER [None]
  - GAIT DISTURBANCE [None]
  - ASTHENIA [None]
  - VISUAL IMPAIRMENT [None]
  - DYSARTHRIA [None]
  - FALL [None]
  - URINARY TRACT PAIN [None]
